FAERS Safety Report 24701416 (Version 1)
Quarter: 2024Q4

REPORT INFORMATION
  Report Type: Spontaneous
  Country: US (occurrence: None)
  Receive Date: 20241205
  Receipt Date: 20241205
  Transmission Date: 20250115
  Serious: No
  Sender: Public
  Company Number: None

PATIENT
  Age: 64 Year
  Sex: Female
  Weight: 63.96 kg

DRUGS (13)
  1. CYMBALTA [Suspect]
     Active Substance: DULOXETINE HYDROCHLORIDE
     Indication: Fibromyalgia
     Dosage: OTHER QUANTITY : 1 DOSAGE ;?FREQUENCY : DAILY;?
     Route: 048
     Dates: start: 20231010, end: 20241119
  2. LOPID [Concomitant]
     Active Substance: GEMFIBROZIL
  3. PAXIL [Concomitant]
     Active Substance: PAROXETINE HYDROCHLORIDE
  4. LOSARTAN [Concomitant]
     Active Substance: LOSARTAN
  5. glimapride [Concomitant]
  6. pantoprazine [Concomitant]
  7. PIOGLITAZONE [Concomitant]
     Active Substance: PIOGLITAZONE
  8. METOPROLOL [Concomitant]
     Active Substance: METOPROLOL
  9. CYMBALTA [Concomitant]
     Active Substance: DULOXETINE HYDROCHLORIDE
  10. CLOPIDOGREL [Concomitant]
     Active Substance: CLOPIDOGREL BISULFATE
  11. isosorbide monitrate er [Concomitant]
  12. CLONOPIN [Concomitant]
     Active Substance: CLONAZEPAM
  13. HYDROXYZINE [Concomitant]
     Active Substance: HYDROXYZINE HYDROCHLORIDE

REACTIONS (1)
  - Panic attack [None]

NARRATIVE: CASE EVENT DATE: 20231010
